FAERS Safety Report 5079370-X (Version None)
Quarter: 2006Q3

REPORT INFORMATION
  Report Type: 
  Country: None (occurrence: None)
  Receive Date: 20060809
  Receipt Date: 20060724
  Transmission Date: 20061208
  Serious: Yes (Hospitalization)
  Sender: FDA-Public Use
  Company Number: 2006001492

PATIENT
  Age: 50 Year
  Sex: Male
  Weight: 95.6 kg

DRUGS (5)
  1. ERLOTINIB (TABLET) [Suspect]
     Dosage: 100 G (QD), ORAL
     Route: 048
     Dates: start: 20060703
  2. BEVACIZUMAB (INJECTION FOR INFUSION) [Suspect]
     Indication: NON-SMALL CELL LUNG CANCER
     Dosage: 15MG/KG Q3W, INTRAVENOUS
     Route: 042
     Dates: start: 20060703
  3. DARVOCET [Concomitant]
  4. NEURONTIN [Concomitant]
  5. IBUPROFEN [Concomitant]

REACTIONS (3)
  - DEHYDRATION [None]
  - DIARRHOEA [None]
  - PAIN [None]
